FAERS Safety Report 14926831 (Version 2)
Quarter: 2018Q2

REPORT INFORMATION
  Report Type: Spontaneous
  Country: US (occurrence: US)
  Receive Date: 20180523
  Receipt Date: 20180629
  Transmission Date: 20180711
  Serious: No
  Sender: FDA-Public Use
  Company Number: US-ASTRAZENECA-2018SE55419

PATIENT
  Age: 22068 Day
  Sex: Female
  Weight: 43.1 kg

DRUGS (5)
  1. LANTUS [Concomitant]
     Active Substance: INSULIN GLARGINE
     Indication: DIABETES MELLITUS
     Dosage: 17USP UNITS AT NIGHT
     Route: 058
     Dates: start: 2011
  2. XOPENEX [Concomitant]
     Active Substance: LEVALBUTEROL HYDROCHLORIDE
     Indication: ASTHMA
     Dosage: 45.0UG AS REQUIRED
     Route: 055
  3. SYMBICORT [Suspect]
     Active Substance: BUDESONIDE\FORMOTEROL FUMARATE DIHYDRATE
     Indication: ASTHMA
     Dosage: 160/4.5 MCG, 2 INHALATIONS TWICE A DAY
     Route: 055
     Dates: start: 201702
  4. HUMALOG [Concomitant]
     Active Substance: INSULIN LISPRO
     Indication: DIABETES MELLITUS
     Dosage: 6USP UNITS BEFORE MEALS
     Route: 058
     Dates: start: 2011
  5. SYMBICORT [Suspect]
     Active Substance: BUDESONIDE\FORMOTEROL FUMARATE DIHYDRATE
     Indication: CHRONIC OBSTRUCTIVE PULMONARY DISEASE
     Dosage: 160/4.5 MCG, 2 INHALATIONS TWICE A DAY
     Route: 055
     Dates: start: 201702

REACTIONS (10)
  - Chronic obstructive pulmonary disease [Unknown]
  - Dyspnoea [Unknown]
  - Drug effect decreased [Unknown]
  - Intentional product misuse [Unknown]
  - Off label use [Unknown]
  - Tongue discomfort [Not Recovered/Not Resolved]
  - Speech disorder [Unknown]
  - Rash erythematous [Unknown]
  - Asthma [Unknown]
  - Product quality issue [Unknown]

NARRATIVE: CASE EVENT DATE: 201702
